FAERS Safety Report 6311212-4 (Version None)
Quarter: 2009Q3

REPORT INFORMATION
  Report Type: 
  Country: None (occurrence: None)
  Receive Date: 20090817
  Receipt Date: 20090806
  Transmission Date: 20100115
  Serious: Yes (Hospitalization)
  Sender: FDA-Public Use
  Company Number: US-AMGEN-QUU359140

PATIENT
  Sex: Female

DRUGS (3)
  1. NEULASTA [Suspect]
     Indication: CHEMOTHERAPY
     Route: 065
     Dates: start: 20090603
  2. ADRIAMYCIN PFS [Concomitant]
     Dates: start: 20090603
  3. CYTOXAN [Concomitant]
     Dates: start: 20090603

REACTIONS (5)
  - BONE PAIN [None]
  - DRUG ADMINISTRATION ERROR [None]
  - ESCHERICHIA INFECTION [None]
  - INJECTION SITE PAIN [None]
  - NEUTROPENIA [None]
